FAERS Safety Report 12926555 (Version 1)
Quarter: 2016Q4

REPORT INFORMATION
  Report Type: Spontaneous
  Country: FR (occurrence: FR)
  Receive Date: 20161109
  Receipt Date: 20161109
  Transmission Date: 20170207
  Serious: Yes (Other)
  Sender: FDA-Public Use
  Company Number: FR-PFIZER INC-2016507323

PATIENT
  Age: 76 Year
  Sex: Female

DRUGS (6)
  1. CARBOPLATINE HOSPIRA [Suspect]
     Active Substance: CARBOPLATIN
     Indication: OVARIAN EPITHELIAL CANCER
     Dosage: 80 MG/M2, CYCLIC ON DAY 1, DAY 8, AND DAY 15
     Route: 042
     Dates: start: 20160523
  2. CARBOPLATINE HOSPIRA [Suspect]
     Active Substance: CARBOPLATIN
     Dosage: 80 MG/M2, CYCLIC ON DAY 1
     Route: 042
     Dates: start: 20160905
  3. PACLITAXEL ACCORD [Suspect]
     Active Substance: PACLITAXEL
     Dosage: DOSE DECREASE OF 75%
     Dates: start: 20160704, end: 20160829
  4. PACLITAXEL ACCORD [Suspect]
     Active Substance: PACLITAXEL
     Indication: OVARIAN EPITHELIAL CANCER
     Dosage: 80 MG/M2, CYCLIC ON DAY 1, DAY 8, AND DAY 15
     Route: 042
     Dates: start: 20160523
  5. CARBOPLATINE HOSPIRA [Suspect]
     Active Substance: CARBOPLATIN
     Dosage: DOSE DECREASE OF 75%
     Route: 042
     Dates: start: 20160822
  6. CARBOPLATINE HOSPIRA [Suspect]
     Active Substance: CARBOPLATIN
     Dosage: DOSE DECREASE OF 75%
     Route: 042
     Dates: start: 20160912, end: 20160919

REACTIONS (1)
  - Palmar erythema [Recovered/Resolved]

NARRATIVE: CASE EVENT DATE: 20160816
